FAERS Safety Report 8453901-1 (Version None)
Quarter: 2012Q2

REPORT INFORMATION
  Report Type: 
  Country: None (occurrence: None)
  Receive Date: 20120323
  Receipt Date: 20110914
  Transmission Date: 20120825
  Serious: Yes (Other)
  Sender: FDA-Public Use
  Company Number: 193-21880-11091995

PATIENT
  Age: 69 Year
  Sex: Female
  Weight: 48.5349 kg

DRUGS (12)
  1. CALCIUM [Concomitant]
  2. DIAZEPAM [Concomitant]
  3. PIPERACILLIN [Concomitant]
  4. IMODIUM [Concomitant]
  5. ZOLOFT [Concomitant]
  6. FLEXERIL [Concomitant]
  7. REVLIMID [Suspect]
     Indication: HYPERCOAGULATION
     Dosage: 5 MG, 1 IN 1 D, PO : 10 MG, 1 IN 1 D, PO
     Route: 048
     Dates: start: 20101201
  8. REVLIMID [Suspect]
     Indication: HYPERCOAGULATION
     Dosage: 5 MG, 1 IN 1 D, PO : 10 MG, 1 IN 1 D, PO
     Route: 048
     Dates: start: 20101010
  9. PREDNISONE TAB [Concomitant]
  10. TRAMADOL HCL [Concomitant]
  11. MULTI-VITAMINS [Concomitant]
  12. VITAMIN B COMPLEX CAP [Concomitant]

REACTIONS (1)
  - FULL BLOOD COUNT DECREASED [None]
